FAERS Safety Report 15367379 (Version 1)
Quarter: 2018Q3

REPORT INFORMATION
  Report Type: Spontaneous
  Country: US (occurrence: US)
  Receive Date: 20180904
  Receipt Date: 20180904
  Transmission Date: 20181010
  Serious: Yes (Disabling)
  Sender: FDA-Public Use
  Company Number: None

PATIENT
  Age: 48 Year
  Sex: Female
  Weight: 66.15 kg

DRUGS (9)
  1. MAGNESIUM [Concomitant]
     Active Substance: MAGNESIUM
  2. COQ10 [Concomitant]
     Active Substance: UBIDECARENONE
  3. CIPRO [Suspect]
     Active Substance: CIPROFLOXACIN HYDROCHLORIDE
     Indication: KIDNEY INFECTION
     Route: 048
     Dates: start: 20170920, end: 20170926
  4. OMEGA?3 ACIDS [Concomitant]
     Active Substance: OMEGA-3 FATTY ACIDS
  5. MELATONIN [Concomitant]
     Active Substance: MELATONIN
  6. MULTI?VITAMIN [Concomitant]
     Active Substance: .ALPHA.-TOCOPHEROL ACETATE, DL-\ASCORBIC ACID\CYANOCOBALAMIN\FLUORIDE ION\FOLIC ACID\NIACIN\PYRIDOXINE\RIBOFLAVIN\THIAMINE\VITAMIN A\VITAMIN D
  7. PROBIOTIC [Concomitant]
     Active Substance: PROBIOTICS NOS
  8. THEANINE [Concomitant]
     Active Substance: THEANINE
  9. DIGESTIVE ENZYMES [Concomitant]
     Active Substance: UNSPECIFIED INGREDIENT

REACTIONS (11)
  - Fatigue [None]
  - Hypovitaminosis [None]
  - Back pain [None]
  - Palpitations [None]
  - Mitochondrial enzyme deficiency [None]
  - Arthralgia [None]
  - Insomnia [None]
  - Visual impairment [None]
  - Neuralgia [None]
  - Neuropathy peripheral [None]
  - Muscle twitching [None]

NARRATIVE: CASE EVENT DATE: 20170920
